FAERS Safety Report 9818886 (Version 1)
Quarter: 2014Q1

REPORT INFORMATION
  Report Type: Spontaneous
  Country: US (occurrence: US)
  Receive Date: 20140115
  Receipt Date: 20140115
  Transmission Date: 20141002
  Serious: Yes (Other)
  Sender: FDA-Public Use
  Company Number: US-BAYER-2014-006491

PATIENT
  Sex: 0

DRUGS (7)
  1. BAYER GENUINE ASPIRIN ORIGINAL STRENGTH [Suspect]
     Dosage: UNK
  2. ALEVE CAPLET [Suspect]
     Dosage: UNK
  3. ADVIL [Suspect]
  4. IBUPROFEN [IBUPROFEN] [Suspect]
  5. MOTRIN [Suspect]
  6. NAPROXEN [Suspect]
  7. IBUPROFEN [IBUPROFEN] [Suspect]

REACTIONS (3)
  - Haematemesis [None]
  - Rectal haemorrhage [None]
  - Abdominal discomfort [None]
